FAERS Safety Report 25666821 (Version 3)
Quarter: 2025Q3

REPORT INFORMATION
  Report Type: Spontaneous
  Country: CO (occurrence: CO)
  Receive Date: 20250811
  Receipt Date: 20250926
  Transmission Date: 20251020
  Serious: No
  Sender: PFIZER
  Company Number: CO-PFIZER INC-PV202500095166

PATIENT
  Age: 16 Year
  Sex: Male

DRUGS (1)
  1. GENOTROPIN [Suspect]
     Active Substance: SOMATROPIN
     Dosage: 2 MG, 1X/DAY
     Route: 058

REACTIONS (3)
  - Device leakage [Unknown]
  - Wrong technique in device usage process [Unknown]
  - Product communication issue [Unknown]
